FAERS Safety Report 7627874-5 (Version None)
Quarter: 2011Q3

REPORT INFORMATION
  Report Type: 
  Country: None (occurrence: None)
  Receive Date: 20110721
  Receipt Date: 20110712
  Transmission Date: 20111222
  Serious: Yes (Other)
  Sender: FDA-Public Use
  Company Number: US-MERCK-1011USA01584

PATIENT
  Age: 54 Year
  Sex: Female
  Weight: 65 kg

DRUGS (15)
  1. SYNTHROID [Concomitant]
     Route: 065
  2. FOSAMAX [Suspect]
     Indication: OSTEOPOROSIS
     Route: 048
     Dates: start: 19970101, end: 19990701
  3. FOSAMAX [Suspect]
     Route: 048
     Dates: start: 20001001, end: 20070101
  4. LIPITOR [Concomitant]
     Route: 065
  5. BONIVA [Suspect]
     Indication: OSTEOPOROSIS
     Route: 048
     Dates: start: 20051201, end: 20091101
  6. AMOXICILLIN [Concomitant]
     Indication: DENTAL DISORDER PROPHYLAXIS
     Dosage: 4 PILLS 1 HR BEFORE DENTAL WORK
     Route: 065
  7. VITAMINS (UNSPECIFIED) [Concomitant]
     Route: 065
  8. [THERAPY UNSPECIFIED] [Concomitant]
     Route: 065
  9. FOSAMAX [Suspect]
     Route: 048
     Dates: start: 19980901, end: 20000901
  10. CALCIUM (UNSPECIFIED) [Concomitant]
     Route: 065
     Dates: start: 19980101
  11. FOSAMAX [Suspect]
     Route: 048
     Dates: start: 20001001, end: 20070101
  12. FOSAMAX [Suspect]
     Indication: SENILE OSTEOPOROSIS
     Route: 048
     Dates: start: 19970101, end: 19990701
  13. FOSAMAX [Suspect]
     Route: 048
     Dates: start: 19980901, end: 20000901
  14. OS-CAL [Concomitant]
     Route: 065
     Dates: start: 20030501
  15. CELEXA [Concomitant]
     Route: 065

REACTIONS (37)
  - FEMUR FRACTURE [None]
  - OESTROGEN DEFICIENCY [None]
  - SKELETAL INJURY [None]
  - WEIGHT INCREASED [None]
  - PERIODONTAL DISEASE [None]
  - CERUMEN IMPACTION [None]
  - MITRAL VALVE INCOMPETENCE [None]
  - KYPHOSIS [None]
  - IMPAIRED HEALING [None]
  - EAR INFECTION [None]
  - GINGIVAL DISORDER [None]
  - GRIEF REACTION [None]
  - LOW TURNOVER OSTEOPATHY [None]
  - HAEMORRHOIDS [None]
  - GASTROENTERITIS [None]
  - DIVERTICULUM [None]
  - EYE DISORDER [None]
  - OSTEONECROSIS [None]
  - OSTEOARTHRITIS [None]
  - MONOCLONAL IMMUNOGLOBULIN PRESENT [None]
  - LUMBAR SPINAL STENOSIS [None]
  - INSOMNIA [None]
  - TOOTH DISORDER [None]
  - LIMB INJURY [None]
  - SKIN HYPERPIGMENTATION [None]
  - FATIGUE [None]
  - VERTIGO [None]
  - SEBORRHOEA [None]
  - OSTEOPOROSIS [None]
  - OSTEOPENIA [None]
  - COLONIC POLYP [None]
  - BLOOD CREATINE PHOSPHOKINASE INCREASED [None]
  - HYPERTENSION [None]
  - SPINAL OSTEOARTHRITIS [None]
  - RENAL DISORDER [None]
  - DEPRESSION [None]
  - OSTEOPETROSIS [None]
